FAERS Safety Report 9816343 (Version 4)
Quarter: 2014Q1

REPORT INFORMATION
  Report Type: Spontaneous
  Country: JP (occurrence: JP)
  Receive Date: 20140114
  Receipt Date: 20140123
  Transmission Date: 20141002
  Serious: Yes (Hospitalization)
  Sender: FDA-Public Use
  Company Number: JP-PFIZER INC-2013366297

PATIENT
  Age: 79 Year
  Sex: Female
  Weight: 55 kg

DRUGS (17)
  1. ZOSYN [Suspect]
     Indication: PNEUMONIA
     Dosage: 4.5 G, 2X/DAY
     Route: 041
     Dates: start: 20130603, end: 20130610
  2. ZOSYN [Suspect]
     Indication: BRONCHITIS
     Dosage: 4.5 G, 2X/DAY
     Dates: start: 20130626, end: 20130630
  3. LASIX [Concomitant]
     Dosage: UNK
     Route: 042
     Dates: start: 20130602, end: 20130611
  4. NOVO HEPARIN [Concomitant]
     Dosage: UNK
     Route: 042
     Dates: start: 20130525, end: 20130614
  5. WARFARIN [Concomitant]
     Dosage: UNK
     Route: 048
  6. HANDARAMIN [Concomitant]
     Dosage: UNK
  7. SAMSCA [Concomitant]
     Dosage: UNK
     Route: 048
  8. SLOW-K [Concomitant]
     Dosage: UNK
     Route: 048
  9. RABEPRAZOLE [Concomitant]
     Dosage: UNK
     Route: 048
  10. FERROMIA [Concomitant]
     Dosage: UNK
     Route: 048
  11. MUCOSTA [Concomitant]
     Dosage: UNK
  12. THEO-DUR [Concomitant]
     Dosage: UNK
     Route: 048
  13. SINGULAIR [Concomitant]
     Dosage: UNK
     Route: 048
  14. DIART [Concomitant]
     Dosage: UNK
     Route: 048
  15. NATRIX [Concomitant]
     Dosage: UNK
     Route: 048
  16. SPIRONOLACTONE [Concomitant]
     Dosage: UNK
     Route: 048
  17. MUCODYNE [Concomitant]
     Dosage: UNK
     Route: 048

REACTIONS (1)
  - Renal impairment [Recovered/Resolved]
